FAERS Safety Report 23399024 (Version 1)
Quarter: 2024Q1

REPORT INFORMATION
  Report Type: Report from Study
  Country: CH (occurrence: CH)
  Receive Date: 20240112
  Receipt Date: 20240112
  Transmission Date: 20240410
  Serious: Yes (Death)
  Sender: FDA-Public Use
  Company Number: CH-ABBVIE-5582750

PATIENT
  Age: 83 Year
  Sex: Female
  Weight: 67 kg

DRUGS (3)
  1. CARBIDOPA\LEVODOPA [Suspect]
     Active Substance: CARBIDOPA\LEVODOPA
     Indication: Parkinson^s disease
     Dosage: FREQUENCY TEXT: 16H THERAPY
     Route: 050
     Dates: start: 20221103
  2. CARBIDOPA\LEVODOPA [Suspect]
     Active Substance: CARBIDOPA\LEVODOPA
     Dosage: MD: 3.5 ML, CRD: 0.8 ML/H,  ED: 0.5 ML?FREQUENCY TEXT: 16H THERAPY
     Route: 050
     Dates: start: 20231123
  3. CARBIDOPA\LEVODOPA [Suspect]
     Active Substance: CARBIDOPA\LEVODOPA
     Dosage: MD: 3.5 ML, CRD: 0.5 ML/H,  ED: 0.5 ML?FREQUENCY TEXT: 16H THERAPY
     Route: 050
     Dates: start: 20231120, end: 20231123

REACTIONS (3)
  - Apathy [Fatal]
  - Hypophagia [Unknown]
  - Fluid intake reduced [Unknown]

NARRATIVE: CASE EVENT DATE: 20231201
